FAERS Safety Report 7597849-3 (Version None)
Quarter: 2011Q3

REPORT INFORMATION
  Report Type: 
  Country: None (occurrence: None)
  Receive Date: 20110708
  Receipt Date: 20110629
  Transmission Date: 20111222
  Serious: Yes (Other)
  Sender: FDA-Public Use
  Company Number: JP-MERCK-1107USA00325

PATIENT
  Age: 32 Year
  Sex: Female

DRUGS (12)
  1. DECADRON [Suspect]
     Route: 048
  2. DECADRON [Suspect]
     Route: 048
  3. DECADRON [Suspect]
     Route: 048
  4. ONCOVIN [Concomitant]
     Indication: MULTIPLE MYELOMA
     Route: 041
  5. DECADRON [Suspect]
     Route: 048
  6. CYCLOPHOSPHAMIDE [Concomitant]
     Indication: MULTIPLE MYELOMA
     Route: 041
  7. THALIDOMIDE [Concomitant]
     Route: 048
  8. DECADRON [Suspect]
     Indication: LIGHT CHAIN DISEASE
     Route: 048
  9. PREDNISOLONE [Concomitant]
     Route: 065
  10. ETOPOSIDE [Concomitant]
     Route: 041
  11. DOXORUBICIN HYDROCHLORIDE [Concomitant]
     Indication: MULTIPLE MYELOMA
     Route: 041
  12. DECADRON [Suspect]
     Route: 048

REACTIONS (2)
  - RESPIRATORY TRACT INFECTION [None]
  - PNEUMONIA BACTERIAL [None]
